FAERS Safety Report 14166329 (Version 1)
Quarter: 2017Q4

REPORT INFORMATION
  Report Type: Spontaneous
  Country: US (occurrence: US)
  Receive Date: 20171106
  Receipt Date: 20171106
  Transmission Date: 20180321
  Serious: Yes (Other)
  Sender: FDA-Public Use
  Company Number: None

PATIENT
  Sex: Female

DRUGS (2)
  1. LEVOTHYROXINE. [Suspect]
     Active Substance: LEVOTHYROXINE
     Indication: THYROID DISORDER
     Route: 048
  2. FEMRING [Concomitant]
     Active Substance: ESTRADIOL ACETATE

REACTIONS (4)
  - Erythema [None]
  - Product substitution issue [None]
  - Pruritus [None]
  - Rash [None]
